FAERS Safety Report 4873725-1 (Version None)
Quarter: 2006Q1

REPORT INFORMATION
  Report Type: 
  Country: None (occurrence: None)
  Receive Date: 20060105
  Receipt Date: 20060105
  Transmission Date: 20060701
  Serious: No
  Sender: FDA-Public Use
  Company Number: None

PATIENT
  Age: 41 Year
  Sex: Female

DRUGS (3)
  1. VICODIN ES [Suspect]
  2. ZELNORM [Suspect]
  3. DIAZEPAM [Suspect]

REACTIONS (4)
  - CHEST DISCOMFORT [None]
  - DRUG DISPENSING ERROR [None]
  - MEDICATION ERROR [None]
  - SOMNOLENCE [None]
